FAERS Safety Report 5598682-4 (Version None)
Quarter: 2007Q4

REPORT INFORMATION
  Report Type: 
  Country: None (occurrence: None)
  Receive Date: 20071226
  Receipt Date: 20071024
  Transmission Date: 20080405
  Serious: No
  Sender: FDA-Public Use
  Company Number: 2007PV033629

PATIENT
  Age: 67 Year
  Sex: Male
  Weight: 108.8633 kg

DRUGS (7)
  1. SYMLIN [Suspect]
     Indication: TYPE 2 DIABETES MELLITUS
     Dosage: 120, 60 MCG, TID, SC
     Route: 058
     Dates: start: 20050101, end: 20050101
  2. SYMLIN [Suspect]
     Indication: TYPE 2 DIABETES MELLITUS
     Dosage: 120, 60 MCG, TID, SC
     Route: 058
     Dates: start: 20050101, end: 20060101
  3. SYMLIN [Suspect]
     Indication: TYPE 2 DIABETES MELLITUS
     Dosage: 120, 60 MCG, TID, SC
     Route: 058
     Dates: start: 20060101
  4. METFORMIN [Concomitant]
  5. NOVOLOG [Concomitant]
  6. LANTUS [Concomitant]
  7. GINSENG [Concomitant]

REACTIONS (3)
  - DYSGEUSIA [None]
  - WEIGHT INCREASED [None]
  - WRONG DRUG ADMINISTERED [None]
